FAERS Safety Report 9530953 (Version 1)
Quarter: 2013Q3

REPORT INFORMATION
  Report Type: Spontaneous
  Country: US (occurrence: US)
  Receive Date: 20130918
  Receipt Date: 20130918
  Transmission Date: 20140515
  Serious: Yes (Other)
  Sender: FDA-Public Use
  Company Number: US-JNJFOC-20130903189

PATIENT
  Sex: Female
  Weight: 68.04 kg

DRUGS (1)
  1. NEUTROGENA T/GEL THERAPEUTIC SHAMPOO ORIGINAL FORMULA [Suspect]
     Indication: PRODUCT USED FOR UNKNOWN INDICATION
     Route: 061

REACTIONS (3)
  - Skin haemorrhage [Recovering/Resolving]
  - Agitation [Unknown]
  - Product packaging issue [Unknown]
